FAERS Safety Report 9252009 (Version 1)
Quarter: 2013Q2

REPORT INFORMATION
  Report Type: Spontaneous
  Country: GB (occurrence: GB)
  Receive Date: 20130424
  Receipt Date: 20130424
  Transmission Date: 20140414
  Serious: Yes (Disabling)
  Sender: FDA-Public Use
  Company Number: GB-MYLANLABS-2013S1008028

PATIENT
  Age: 89 Year
  Sex: Female
  Weight: 56.69 kg

DRUGS (1)
  1. OMEPRAZOLE [Suspect]
     Indication: GASTROOESOPHAGEAL REFLUX DISEASE
     Dates: start: 20121222, end: 20130205

REACTIONS (5)
  - Vision blurred [Unknown]
  - Fall [Unknown]
  - Muscular weakness [Recovered/Resolved with Sequelae]
  - Visual impairment [Unknown]
  - Weight decreased [Unknown]
